FAERS Safety Report 18217217 (Version 2)
Quarter: 2020Q3

REPORT INFORMATION
  Report Type: Spontaneous
  Country: US (occurrence: US)
  Receive Date: 20200901
  Receipt Date: 20200907
  Transmission Date: 20201103
  Serious: No
  Sender: FDA-Public Use
  Company Number: US-PFIZER INC-2020336045

PATIENT
  Age: 63 Year
  Sex: Female
  Weight: 55.79 kg

DRUGS (1)
  1. PREGABALIN. [Suspect]
     Active Substance: PREGABALIN
     Indication: EYE PAIN
     Dosage: 100 MG, 3X/DAY
     Route: 048
     Dates: start: 20200327

REACTIONS (7)
  - Feeling abnormal [Unknown]
  - Loss of personal independence in daily activities [Not Recovered/Not Resolved]
  - Product use in unapproved indication [Unknown]
  - Oedema [Recovering/Resolving]
  - Off label use [Unknown]
  - Formication [Not Recovered/Not Resolved]
  - Sensory disturbance [Not Recovered/Not Resolved]

NARRATIVE: CASE EVENT DATE: 2020
